FAERS Safety Report 24768197 (Version 1)
Quarter: 2024Q4

REPORT INFORMATION
  Report Type: Spontaneous
  Country: US (occurrence: None)
  Receive Date: 20241223
  Receipt Date: 20241223
  Transmission Date: 20250115
  Serious: No
  Sender: Public
  Company Number: None

PATIENT
  Age: 76 Year
  Sex: Female
  Weight: 51.7 kg

DRUGS (2)
  1. RYBREVANT [Suspect]
     Active Substance: AMIVANTAMAB-VMJW
     Indication: Non-small cell lung cancer
     Dosage: OTHER FREQUENCY : EVERY 21 DAYS;?
     Route: 042
     Dates: start: 20241111
  2. RYBREVANT [Concomitant]
     Active Substance: AMIVANTAMAB-VMJW
     Dates: start: 20241111

REACTIONS (5)
  - Therapy interrupted [None]
  - Pruritus [None]
  - Flushing [None]
  - Chest discomfort [None]
  - Dyspnoea [None]
